FAERS Safety Report 9870852 (Version 2)
Quarter: 2014Q1

REPORT INFORMATION
  Report Type: Spontaneous
  Country: GB (occurrence: None)
  Receive Date: 20140203
  Receipt Date: 20140306
  Transmission Date: 20141002
  Serious: Yes (Other)
  Sender: FDA-Public Use
  Company Number: 2014AP000799

PATIENT
  Age: 43 Year
  Sex: Male

DRUGS (5)
  1. AMISULPRIDE [Suspect]
  2. AMLODIPINE (AMLODIPINE) [Concomitant]
  3. ARIPIPRAZOLE [Concomitant]
  4. BENDROFLUMETHIAZIDE (BENDROFLUMETHIAZIDE) [Concomitant]
  5. DEPAKOTE (VALPROATE SEMISODIUM) [Concomitant]

REACTIONS (2)
  - Electrocardiogram QT prolonged [None]
  - Electrocardiogram QT shortened [None]
